FAERS Safety Report 12514750 (Version 1)
Quarter: 2016Q2

REPORT INFORMATION
  Report Type: Spontaneous
  Country: US (occurrence: None)
  Receive Date: 20160629
  Receipt Date: 20160629
  Transmission Date: 20160815
  Serious: No
  Sender: FDA-Public Use
  Company Number: None

PATIENT
  Age: 72 Year
  Sex: Male

DRUGS (13)
  1. CITALOPRAM [Concomitant]
     Active Substance: CITALOPRAM HYDROBROMIDE
  2. ISOSORBIDE MONO ER [Concomitant]
  3. LORATADINE. [Concomitant]
     Active Substance: LORATADINE
  4. FUROSEMIDE. [Concomitant]
     Active Substance: FUROSEMIDE
  5. HYDROCODONE [Suspect]
     Active Substance: HYDROCODONE
     Dosage: HYDROCODONE 5/235MG Q6H PRN PO
     Route: 048
  6. CARVEDILOL. [Concomitant]
     Active Substance: CARVEDILOL
  7. ESZOPICLONE. [Concomitant]
     Active Substance: ESZOPICLONE
  8. HYDRALAZINE [Concomitant]
     Active Substance: HYDRALAZINE HYDROCHLORIDE
  9. DIGOXIN. [Concomitant]
     Active Substance: DIGOXIN
  10. GLIPIZIDE. [Concomitant]
     Active Substance: GLIPIZIDE
  11. INSULIN SLIDING SCALE [Concomitant]
  12. ASPIRIN. [Concomitant]
     Active Substance: ASPIRIN
  13. WARFARIN [Concomitant]
     Active Substance: WARFARIN

REACTIONS (3)
  - Urinary hesitation [None]
  - Constipation [None]
  - Pruritus [None]

NARRATIVE: CASE EVENT DATE: 20150528
